FAERS Safety Report 16850498 (Version 1)
Quarter: 2019Q3

REPORT INFORMATION
  Report Type: Spontaneous
  Country: RS (occurrence: RS)
  Receive Date: 20190925
  Receipt Date: 20190925
  Transmission Date: 20191005
  Serious: Yes (Other)
  Sender: FDA-Public Use
  Company Number: RS-ASTELLAS-2019US037707

PATIENT
  Sex: Male

DRUGS (3)
  1. XTANDI [Suspect]
     Active Substance: ENZALUTAMIDE
     Dosage: UNK UNK, UNKNOWN FREQ. (CYCLE 2)
     Route: 065
  2. XTANDI [Suspect]
     Active Substance: ENZALUTAMIDE
     Dosage: UNK UNK, UNKNOWN FREQ. (CYCLE 3)
     Route: 065
     Dates: start: 201908, end: 201909
  3. XTANDI [Suspect]
     Active Substance: ENZALUTAMIDE
     Indication: PRODUCT USED FOR UNKNOWN INDICATION
     Dosage: UNK UNK, UNKNOWN FREQ. (CYCLE 1)
     Route: 065
     Dates: start: 201905

REACTIONS (4)
  - Vision blurred [Recovered/Resolved]
  - Blood pressure decreased [Unknown]
  - Treatment noncompliance [Unknown]
  - Heart rate decreased [Unknown]
